FAERS Safety Report 12738058 (Version 3)
Quarter: 2016Q4

REPORT INFORMATION
  Report Type: Spontaneous
  Country: RU (occurrence: RU)
  Receive Date: 20160913
  Receipt Date: 20161018
  Transmission Date: 20170207
  Serious: Yes (Hospitalization)
  Sender: FDA-Public Use
  Company Number: RU-BAYER-2016-173472

PATIENT
  Age: 16 Year
  Sex: Female

DRUGS (3)
  1. YARINA PLUS [Suspect]
     Active Substance: DROSPIRENONE\ETHINYL ESTRADIOL\LEVOMEFOLATE CALCIUM
     Indication: CONTRACEPTION
     Dosage: 1 DF, QD
     Route: 048
     Dates: start: 201605, end: 20160905
  2. YARINA PLUS [Suspect]
     Active Substance: DROSPIRENONE\ETHINYL ESTRADIOL\LEVOMEFOLATE CALCIUM
     Indication: DYSMENORRHOEA
  3. YARINA PLUS [Suspect]
     Active Substance: DROSPIRENONE\ETHINYL ESTRADIOL\LEVOMEFOLATE CALCIUM
     Indication: ADENOMYOSIS

REACTIONS (9)
  - Deep vein thrombosis [None]
  - Dehydration [None]
  - Embolism venous [None]
  - Thrombophlebitis [None]
  - Pelvic venous thrombosis [None]
  - Vomiting [None]
  - Gastroenteritis [None]
  - Abdominal pain [None]
  - Groin pain [None]

NARRATIVE: CASE EVENT DATE: 20160823
